FAERS Safety Report 9725228 (Version 1)
Quarter: 2013Q4

REPORT INFORMATION
  Report Type: Spontaneous
  Country: CA (occurrence: None)
  Receive Date: 20131202
  Receipt Date: 20131202
  Transmission Date: 20140711
  Serious: No
  Sender: FDA-Public Use
  Company Number: None

PATIENT
  Age: 25 Year
  Sex: Female
  Weight: 74.84 kg

DRUGS (1)
  1. CIPROFLOXACIN [Suspect]
     Indication: URINARY TRACT INFECTION
     Dosage: 1 PILL TWICE DAILY TAKEN BY MOUTH
     Dates: start: 20131002, end: 20131008

REACTIONS (18)
  - Disorientation [None]
  - Dissociation [None]
  - Coordination abnormal [None]
  - Pain [None]
  - Fatigue [None]
  - Asthenia [None]
  - Movement disorder [None]
  - Activities of daily living impaired [None]
  - Memory impairment [None]
  - Headache [None]
  - Tinnitus [None]
  - Sunburn [None]
  - Nightmare [None]
  - Paraesthesia [None]
  - Feeling abnormal [None]
  - Hypoaesthesia [None]
  - Pain in extremity [None]
  - Neuropathy peripheral [None]
